FAERS Safety Report 19686826 (Version 1)
Quarter: 2021Q3

REPORT INFORMATION
  Report Type: Spontaneous
  Country: FR (occurrence: FR)
  Receive Date: 20210811
  Receipt Date: 20210811
  Transmission Date: 20211014
  Serious: Yes (Death, Other)
  Sender: FDA-Public Use
  Company Number: FR-MYLANLABS-2021M1049380

PATIENT
  Age: 27 Year
  Sex: Male

DRUGS (3)
  1. YOHIMBINE [Suspect]
     Active Substance: YOHIMBINE
     Indication: WEIGHT DECREASED
     Dosage: UNK
     Route: 065
  2. YOHIMBINE [Suspect]
     Active Substance: YOHIMBINE
     Indication: MUSCLE BUILDING THERAPY
  3. TRAMADOL. [Suspect]
     Active Substance: TRAMADOL
     Indication: PRODUCT USED FOR UNKNOWN INDICATION
     Dosage: UNK
     Route: 065

REACTIONS (5)
  - Toxicity to various agents [Fatal]
  - Circulatory collapse [Not Recovered/Not Resolved]
  - Palpitations [Unknown]
  - Product use in unapproved indication [Not Recovered/Not Resolved]
  - Drug abuse [Not Recovered/Not Resolved]
